FAERS Safety Report 24112595 (Version 1)
Quarter: 2024Q3

REPORT INFORMATION
  Report Type: Spontaneous
  Country: FR (occurrence: None)
  Receive Date: 20240719
  Receipt Date: 20240719
  Transmission Date: 20241016
  Serious: Yes (Other)
  Sender: ASTRAZENECA
  Company Number: 2024A163856

PATIENT
  Age: 31 Year
  Sex: Male
  Weight: 76 kg

DRUGS (8)
  1. QUETIAPINE [Suspect]
     Active Substance: QUETIAPINE
     Indication: Affective disorder
     Dosage: INITIAL DOSES UNKNOWN, THEN 600 MG/DAY AT THE TIME OF THE INCIDENT, THEN 800 MG/DAY FROM 01/2023,...
     Route: 048
     Dates: start: 202208
  2. QUETIAPINE [Suspect]
     Active Substance: QUETIAPINE
     Indication: Behaviour disorder
     Dosage: INITIAL DOSES UNKNOWN, THEN 600 MG/DAY AT THE TIME OF THE INCIDENT, THEN 800 MG/DAY FROM 01/2023,...
     Route: 048
     Dates: start: 202208
  3. QUETIAPINE [Suspect]
     Active Substance: QUETIAPINE
     Indication: Affective disorder
     Dosage: INITIAL DOSES UNKNOWN, THEN 600 MG/DAY AT THE TIME OF THE INCIDENT, THEN 800 MG/DAY FROM 01/2023,...
     Route: 048
     Dates: start: 202301
  4. QUETIAPINE [Suspect]
     Active Substance: QUETIAPINE
     Indication: Behaviour disorder
     Dosage: INITIAL DOSES UNKNOWN, THEN 600 MG/DAY AT THE TIME OF THE INCIDENT, THEN 800 MG/DAY FROM 01/2023,...
     Route: 048
     Dates: start: 202301
  5. QUETIAPINE [Suspect]
     Active Substance: QUETIAPINE
     Indication: Affective disorder
     Dosage: INITIAL DOSES UNKNOWN, THEN 600 MG/DAY AT THE TIME OF THE INCIDENT, THEN 800 MG/DAY FROM 01/2023,...
     Route: 048
     Dates: start: 202302, end: 20230602
  6. QUETIAPINE [Suspect]
     Active Substance: QUETIAPINE
     Indication: Behaviour disorder
     Dosage: INITIAL DOSES UNKNOWN, THEN 600 MG/DAY AT THE TIME OF THE INCIDENT, THEN 800 MG/DAY FROM 01/2023,...
     Route: 048
     Dates: start: 202302, end: 20230602
  7. RISPERIDONE [Concomitant]
     Active Substance: RISPERIDONE
     Dates: start: 2004, end: 202212
  8. LOXAPINE [Concomitant]
     Active Substance: LOXAPINE
     Dates: end: 202212

REACTIONS (2)
  - Eczema [Recovered/Resolved]
  - Alanine aminotransferase increased [Recovered/Resolved]
